FAERS Safety Report 5428993-4 (Version None)
Quarter: 2007Q3

REPORT INFORMATION
  Report Type: 
  Country: None (occurrence: None)
  Receive Date: 20070731
  Receipt Date: 20070426
  Transmission Date: 20080115
  Serious: No
  Sender: FDA-Public Use
  Company Number: US200704006191

PATIENT
  Age: 61 Year
  Sex: Male
  Weight: 86.2 kg

DRUGS (2)
  1. BYETTA [Suspect]
     Indication: TYPE 2 DIABETES MELLITUS
     Dosage: 5 UG, 2/D, SUBCUTANEOUS, 10 UG, 2/D, SUBCUTANEOUS
     Route: 058
     Dates: start: 20050701
  2. METFORMIN HCL [Concomitant]

REACTIONS (3)
  - BLOOD GLUCOSE INCREASED [None]
  - HEADACHE [None]
  - NAUSEA [None]
